FAERS Safety Report 18621775 (Version 2)
Quarter: 2021Q1

REPORT INFORMATION
  Report Type: Spontaneous
  Country: US (occurrence: US)
  Receive Date: 20201216
  Receipt Date: 20210122
  Transmission Date: 20210419
  Serious: Yes (Hospitalization)
  Sender: FDA-Public Use
  Company Number: US-TEVA-2020-US-1858176

PATIENT
  Age: 15 Year
  Sex: Female

DRUGS (6)
  1. GEMCITABINE. [Suspect]
     Active Substance: GEMCITABINE
     Indication: ACINAR CELL CARCINOMA OF PANCREAS
     Dosage: EVERY 28 DAYS
     Route: 065
  2. DABRAFENIB [Suspect]
     Active Substance: DABRAFENIB
     Indication: METASTASES TO LYMPH NODES
  3. TRAMETINIB [Suspect]
     Active Substance: TRAMETINIB
     Indication: METASTASES TO LYMPH NODES
  4. NAB?PACLITAXEL [Suspect]
     Active Substance: PACLITAXEL
     Indication: ACINAR CELL CARCINOMA OF PANCREAS
     Dosage: FOR 3 WEEKS WITH A 1 WEEK REST
     Route: 042
  5. DABRAFENIB [Suspect]
     Active Substance: DABRAFENIB
     Indication: ACINAR CELL CARCINOMA OF PANCREAS
     Dosage: 150 MILLIGRAM DAILY;
     Route: 048
  6. TRAMETINIB [Suspect]
     Active Substance: TRAMETINIB
     Indication: ACINAR CELL CARCINOMA OF PANCREAS
     Dosage: 2 MILLIGRAM DAILY;
     Route: 048

REACTIONS (4)
  - Pyrexia [Unknown]
  - Toxicity to various agents [Unknown]
  - Neutropenia [Unknown]
  - Skin disorder [Unknown]
